FAERS Safety Report 5311506-5 (Version None)
Quarter: 2007Q2

REPORT INFORMATION
  Report Type: 
  Country: None (occurrence: None)
  Receive Date: 20070430
  Receipt Date: 20070427
  Transmission Date: 20071010
  Serious: Yes (Other)
  Sender: FDA-Public Use
  Company Number: US-GLAXOSMITHKLINE-A0648873A

PATIENT

DRUGS (1)
  1. PAXIL [Suspect]
     Dates: start: 20030101

REACTIONS (18)
  - ABNORMAL BEHAVIOUR [None]
  - ANTISOCIAL BEHAVIOUR [None]
  - CARDIAC MURMUR [None]
  - COMMUNICATION DISORDER [None]
  - CRYING [None]
  - DEPRESSION [None]
  - DISABILITY [None]
  - DRUG INEFFECTIVE [None]
  - FATIGUE [None]
  - FEAR OF DEATH [None]
  - ILL-DEFINED DISORDER [None]
  - IMPAIRED WORK ABILITY [None]
  - NIGHTMARE [None]
  - OVERDOSE [None]
  - PALPITATIONS [None]
  - PARANOIA [None]
  - SUICIDAL IDEATION [None]
  - SUICIDE ATTEMPT [None]
